FAERS Safety Report 9752889 (Version 1)
Quarter: 2013Q4

REPORT INFORMATION
  Report Type: Spontaneous
  Country: US (occurrence: US)
  Receive Date: 20131213
  Receipt Date: 20131213
  Transmission Date: 20140711
  Serious: No
  Sender: FDA-Public Use
  Company Number: US-GLAXOSMITHKLINE-A1002912A

PATIENT
  Age: 55 Year
  Sex: Male

DRUGS (8)
  1. ARZERRA [Suspect]
     Indication: NON-HODGKIN^S LYMPHOMA
     Dosage: 300MG VARIABLE DOSE
     Route: 042
     Dates: start: 20121119, end: 20121119
  2. TYLENOL [Concomitant]
  3. BENADRYL [Concomitant]
  4. DEXAMETHASONE [Concomitant]
  5. PEPCID [Concomitant]
  6. PRILOSEC [Concomitant]
  7. CLARITIN [Concomitant]
  8. ACYCLOVIR [Concomitant]

REACTIONS (1)
  - Infusion site urticaria [Unknown]
